FAERS Safety Report 9950054 (Version 1)
Quarter: 2014Q1

REPORT INFORMATION
  Report Type: Spontaneous
  Country: US (occurrence: US)
  Receive Date: 20140304
  Receipt Date: 20140304
  Transmission Date: 20141002
  Serious: No
  Sender: FDA-Public Use
  Company Number: US-ABBVIE-13P-163-1067754-00

PATIENT
  Age: 33 Year
  Sex: Male
  Weight: 77.18 kg

DRUGS (3)
  1. HUMIRA [Suspect]
     Indication: ANKYLOSING SPONDYLITIS
     Dates: start: 201208
  2. UNKNOWN FLU SHOT [Suspect]
     Indication: ANTIVIRAL PROPHYLAXIS
     Dates: start: 20130214, end: 20130214
  3. UNKNOWN PNEUMONIA SHOT [Suspect]
     Indication: PROPHYLAXIS
     Dates: start: 20130214, end: 20130214

REACTIONS (8)
  - Uveitis [Recovering/Resolving]
  - Cataract [Recovered/Resolved]
  - Nasopharyngitis [Recovered/Resolved]
  - Back pain [Recovered/Resolved]
  - Injection site pain [Recovered/Resolved]
  - Injection site haemorrhage [Recovered/Resolved]
  - Device malfunction [Recovered/Resolved]
  - Incorrect dose administered [Unknown]
